FAERS Safety Report 20055964 (Version 1)
Quarter: 2021Q4

REPORT INFORMATION
  Report Type: Report from Study
  Country: US (occurrence: US)
  Receive Date: 20211111
  Receipt Date: 20211111
  Transmission Date: 20220303
  Serious: Yes (Hospitalization, Other)
  Sender: FDA-Public Use
  Company Number: US-UNITED THERAPEUTICS-UNT-2021-022659

PATIENT
  Age: 60 Year
  Sex: Female
  Weight: 111.11 kg

DRUGS (2)
  1. TREPROSTINIL SODIUM [Suspect]
     Active Substance: TREPROSTINIL SODIUM
     Indication: Pulmonary arterial hypertension
     Dosage: UNK
     Dates: start: 20210528
  2. TREPROSTINIL SODIUM [Suspect]
     Active Substance: TREPROSTINIL SODIUM
     Dosage: 18-54 ?G, QID
     Dates: start: 2021

REACTIONS (3)
  - Haemorrhage [Unknown]
  - Anaemia [Unknown]
  - Ulcer [Unknown]

NARRATIVE: CASE EVENT DATE: 20211022
